FAERS Safety Report 7361425-8 (Version None)
Quarter: 2011Q1

REPORT INFORMATION
  Report Type: 
  Country: None (occurrence: None)
  Receive Date: 20110318
  Receipt Date: 20110310
  Transmission Date: 20110831
  Serious: Yes (Death, Life-Threatening, Hospitalization)
  Sender: FDA-Public Use
  Company Number: NL-GENZYME-CLOF-1001301

PATIENT
  Sex: Male
  Weight: 110 kg

DRUGS (22)
  1. SULFAMETOXAZOL MED TRIMETOPRIM [Concomitant]
     Indication: PROPHYLAXIS
     Dosage: 3 UNK, 3X/W
     Route: 048
     Dates: start: 20101221
  2. EVOLTRA [Suspect]
     Dosage: 20 MG, QDX5
     Route: 042
     Dates: start: 20101215, end: 20101219
  3. IDARUBICIN [Suspect]
     Dosage: 240 MG, QDX3
     Route: 042
     Dates: start: 20101219, end: 20101221
  4. MEROPENEM [Concomitant]
     Indication: PYREXIA
     Dosage: 3000 MG, QD
     Route: 042
     Dates: start: 20101020, end: 20101102
  5. AMPHOTERICIN B [Concomitant]
     Indication: PYREXIA
     Dosage: 100 MG, QD
     Route: 042
     Dates: start: 20101024, end: 20101102
  6. CASPOFUNGIN [Concomitant]
     Indication: EVIDENCE BASED TREATMENT
     Dosage: 50 MG, UNK
     Route: 042
     Dates: start: 20101101, end: 20101110
  7. CYTARABINE [Suspect]
     Indication: ACUTE MYELOID LEUKAEMIA
     Dosage: 400 MG, QD
     Route: 042
     Dates: start: 20101015, end: 20101021
  8. CYTARABINE [Suspect]
     Dosage: 2000 MG, QD
     Route: 042
     Dates: start: 20101216, end: 20101222
  9. AMPHOTERICIN B [Concomitant]
     Indication: PROPHYLAXIS
     Dosage: 400 MG, UNK
     Route: 048
     Dates: start: 20101015, end: 20101022
  10. FUROSEMID [Concomitant]
     Indication: WEIGHT INCREASED
     Dosage: 3000 MG, UNK
     Route: 042
     Dates: start: 20101015, end: 20101102
  11. AMPHOTERICIN B [Concomitant]
     Indication: PROPHYLAXIS
     Dosage: 200 MG, QID
     Route: 048
     Dates: start: 20101215, end: 20101223
  12. PROPOFOL [Concomitant]
     Indication: SEDATION
     Dosage: 360 MG, UNK
     Route: 042
     Dates: start: 20101104, end: 20101111
  13. POSACONAZOLE [Concomitant]
     Indication: PROPHYLAXIS
     Dosage: 600 MG, UNK
     Route: 048
     Dates: start: 20101023, end: 20101024
  14. EVOLTRA [Suspect]
     Indication: ACUTE MYELOID LEUKAEMIA
     Dosage: 30 MG, QDX5
     Route: 042
     Dates: start: 20101015, end: 20101019
  15. SUFENTANIL CITRATE [Concomitant]
     Indication: SEDATION
     Dosage: 100 MCG, UNK
     Route: 042
     Dates: start: 20101104, end: 20101117
  16. GENTAMICIN [Concomitant]
     Indication: PROPHYLAXIS
     Dosage: 200 MG, QID
     Route: 048
     Dates: start: 20101215, end: 20101223
  17. AMPHOTERICIN B [Concomitant]
     Indication: EVIDENCE BASED TREATMENT
  18. DEXAMETHASONE [Concomitant]
     Indication: PROPHYLAXIS
     Dosage: 8 MG, BID
     Route: 048
     Dates: start: 20101217, end: 20101223
  19. IDARUBICIN [Suspect]
     Indication: ACUTE MYELOID LEUKAEMIA
     Dosage: 24 MG, QDX3
     Route: 042
     Dates: start: 20101015, end: 20101017
  20. CIPROFLOXACIN [Concomitant]
     Indication: PYREXIA
     Dosage: 800 MG, QD
     Route: 042
     Dates: start: 20101028, end: 20101102
  21. SUFENTANIL CITRATE [Concomitant]
     Indication: ANALGESIC THERAPY
  22. VANCOMYCIN HCL [Concomitant]
     Indication: PROPHYLAXIS
     Dosage: 500 MG, QID
     Route: 048
     Dates: start: 20101215, end: 20101223

REACTIONS (7)
  - SEPTIC EMBOLUS [None]
  - CEREBRAL ISCHAEMIA [None]
  - SEPSIS [None]
  - CAPILLARY LEAK SYNDROME [None]
  - ENCEPHALOPATHY [None]
  - ATRIAL FIBRILLATION [None]
  - BRONCHOPULMONARY ASPERGILLOSIS [None]
